FAERS Safety Report 22652861 (Version 1)
Quarter: 2023Q2

REPORT INFORMATION
  Report Type: Spontaneous
  Country: CN (occurrence: CN)
  Receive Date: 20230629
  Receipt Date: 20230629
  Transmission Date: 20230721
  Serious: Yes (Death, Life-Threatening, Other)
  Sender: FDA-Public Use
  Company Number: CN-BRISTOL-MYERS SQUIBB COMPANY-2023-085160

PATIENT
  Age: 63 Year
  Sex: Male

DRUGS (10)
  1. AZACITIDINE [Suspect]
     Active Substance: AZACITIDINE
     Indication: Chronic myelomonocytic leukaemia
     Dosage: ON DAYS 1-7
  2. AZACITIDINE [Suspect]
     Active Substance: AZACITIDINE
     Indication: Squamous cell carcinoma of lung
     Dosage: ON DAYS 1-7 CYCLICAL
  3. PACLITAXEL [Suspect]
     Active Substance: PACLITAXEL
     Indication: Squamous cell carcinoma of lung
     Dosage: ON DAY 1
  4. CARBOPLATIN [Suspect]
     Active Substance: CARBOPLATIN
     Indication: Squamous cell carcinoma of lung
     Dosage: ON DAY 1 CYCLICAL
  5. DOCETAXEL [Suspect]
     Active Substance: DOCETAXEL
     Indication: Squamous cell carcinoma of lung
     Dosage: ON DAY 1 CYCLICAL
  6. CISPLATIN [Suspect]
     Active Substance: CISPLATIN
     Indication: Squamous cell carcinoma of lung
     Dosage: ON DAYS 1-3
  7. CISPLATIN [Suspect]
     Active Substance: CISPLATIN
     Dosage: ON DAYS 1-3 (DP REGIMEN CYCLICAL
  8. GEMCITABINE [Suspect]
     Active Substance: GEMCITABINE
     Indication: Squamous cell carcinoma of lung
     Dosage: ON DAY 1, 8?GP REGIMEN
  9. GEMCITABINE [Suspect]
     Active Substance: GEMCITABINE
     Dosage: ON DAY 1, 8?GP REGIMEN
  10. HYDROXYUREA [Concomitant]
     Active Substance: HYDROXYUREA
     Indication: Pneumonitis

REACTIONS (3)
  - Myelosuppression [Unknown]
  - Chronic myelomonocytic leukaemia [Fatal]
  - Leukostasis syndrome [Fatal]
